FAERS Safety Report 5163765-X (Version None)
Quarter: 2006Q4

REPORT INFORMATION
  Report Type: 
  Country: None (occurrence: None)
  Receive Date: 20061127
  Receipt Date: 20061127
  Transmission Date: 20070319
  Serious: Yes (Life-Threatening, Hospitalization)
  Sender: FDA-Public Use
  Company Number: None

PATIENT
  Age: 68 Year
  Sex: Female
  Weight: 77.1115 kg

DRUGS (1)
  1. LUNESTA [Suspect]
     Indication: INSOMNIA
     Dosage: 1 TABLET AT BEDTIME PO
     Route: 048
     Dates: start: 20060401, end: 20060806

REACTIONS (8)
  - ABNORMAL BEHAVIOUR [None]
  - AMNESIA [None]
  - BACK PAIN [None]
  - CHEST PAIN [None]
  - CONTUSION [None]
  - DISORIENTATION [None]
  - FEELING ABNORMAL [None]
  - ROAD TRAFFIC ACCIDENT [None]
